FAERS Safety Report 4646754-0 (Version None)
Quarter: 2005Q2

REPORT INFORMATION
  Report Type: 
  Country: None (occurrence: None)
  Receive Date: 20050425
  Receipt Date: 20050425
  Transmission Date: 20051028
  Serious: Yes (Hospitalization)
  Sender: FDA-Public Use
  Company Number: None

PATIENT
  Age: 60 Year
  Sex: Male
  Weight: 147.8726 kg

DRUGS (1)
  1. METFORMIN     1000MG [Suspect]
     Indication: DIABETES MELLITUS
     Dosage: 1G   BID  ORAL
     Route: 048
     Dates: start: 20041116, end: 20041123

REACTIONS (1)
  - ABDOMINAL PAIN UPPER [None]
